FAERS Safety Report 22872719 (Version 3)
Quarter: 2024Q2

REPORT INFORMATION
  Report Type: Spontaneous
  Country: US (occurrence: US)
  Receive Date: 20230828
  Receipt Date: 20240517
  Transmission Date: 20240716
  Serious: No
  Sender: FDA-Public Use
  Company Number: US-HORIZON THERAPEUTICS-HZN-2023-006020

PATIENT

DRUGS (12)
  1. PROCYSBI [Suspect]
     Active Substance: CYSTEAMINE BITARTRATE
     Indication: Cystinosis
     Dosage: 1500 MG
     Route: 065
     Dates: start: 20230530
  2. PROCYSBI [Suspect]
     Active Substance: CYSTEAMINE BITARTRATE
     Indication: Cystinosis
     Dosage: TAKE TWO 300 MG GRANULE PACKETS (600 MG) ORALLY EVERY 12 HOURS.
     Route: 048
     Dates: start: 2023
  3. CYSTAGON [Concomitant]
     Active Substance: CYSTEAMINE BITARTRATE
  4. SODIUM BICARBONATE [Concomitant]
     Active Substance: SODIUM BICARBONATE
  5. KEPPRA [Concomitant]
     Active Substance: LEVETIRACETAM
  6. SULFAMETHOXAZOLE AND TRIMETHOPRIM [Concomitant]
     Active Substance: SULFAMETHOXAZOLE\TRIMETHOPRIM
  7. PREDNISONE [Concomitant]
     Active Substance: PREDNISONE
  8. PANTOPRAZOLE SODIUM [Concomitant]
     Active Substance: PANTOPRAZOLE SODIUM
  9. VALGANCICLOVIR [Concomitant]
     Active Substance: VALGANCICLOVIR
  10. MYCOPHENOLIC ACID [Concomitant]
     Active Substance: MYCOPHENOLIC ACID
  11. NYSTATIN [Concomitant]
     Active Substance: NYSTATIN
     Dosage: 100000/ML ORAL SUSPENTION
     Route: 048
  12. FLUOXETINE HYDROCHLORIDE [Concomitant]
     Active Substance: FLUOXETINE HYDROCHLORIDE

REACTIONS (3)
  - White blood cell count decreased [Not Recovered/Not Resolved]
  - Red blood cell count decreased [Not Recovered/Not Resolved]
  - Adverse drug reaction [Unknown]

NARRATIVE: CASE EVENT DATE: 20230101
